FAERS Safety Report 7312399-7 (Version None)
Quarter: 2011Q1

REPORT INFORMATION
  Report Type: 
  Country: None (occurrence: None)
  Receive Date: 20110224
  Receipt Date: 20110207
  Transmission Date: 20110831
  Serious: Yes (Hospitalization, Other)
  Sender: FDA-Public Use
  Company Number: US-BAYER-201029578NA

PATIENT
  Sex: Female

DRUGS (5)
  1. YAZ [Suspect]
     Indication: CONTRACEPTION
     Dosage: UNK
     Route: 048
     Dates: start: 20080801, end: 20091101
  2. ALEVE [Concomitant]
     Indication: ABDOMINAL PAIN
  3. MIRTAZAPIN [Concomitant]
     Dosage: UNK
     Dates: start: 20090714
  4. EXCEDRIN (MIGRAINE) [Concomitant]
     Indication: MIGRAINE
  5. INDOMETHACIN [Concomitant]
     Dosage: UNK
     Dates: start: 20090407

REACTIONS (5)
  - PULMONARY EMBOLISM [None]
  - HAEMOPTYSIS [None]
  - PAIN [None]
  - DEEP VEIN THROMBOSIS [None]
  - CHEST PAIN [None]
